FAERS Safety Report 12912195 (Version 2)
Quarter: 2016Q4

REPORT INFORMATION
  Report Type: Spontaneous
  Country: BR (occurrence: BR)
  Receive Date: 20161104
  Receipt Date: 20161207
  Transmission Date: 20170207
  Serious: Yes (Hospitalization, Other)
  Sender: FDA-Public Use
  Company Number: BR-AMGEN-BRASP2016154930

PATIENT
  Age: 12 Year
  Sex: Male

DRUGS (5)
  1. ENBREL [Suspect]
     Active Substance: ETANERCEPT
     Indication: OSTEITIS
     Dosage: UNK
     Route: 065
  2. PREDNISONE. [Concomitant]
     Active Substance: PREDNISONE
     Dosage: UNK
     Dates: start: 2010
  3. AZATHIOPRINE. [Concomitant]
     Active Substance: AZATHIOPRINE
  4. COLCHICINE. [Concomitant]
     Active Substance: COLCHICINE
     Dosage: 1 TABLET, DAILY
     Dates: end: 201605
  5. ENBREL [Suspect]
     Active Substance: ETANERCEPT
     Indication: BONE PAIN
     Dosage: 0.6 MG, WEEKLY
     Route: 065
     Dates: end: 201605

REACTIONS (10)
  - Abdominal pain [Not Recovered/Not Resolved]
  - Condition aggravated [Not Recovered/Not Resolved]
  - Eating disorder [Not Recovered/Not Resolved]
  - Immunodeficiency [Not Recovered/Not Resolved]
  - Bone pain [Not Recovered/Not Resolved]
  - Drug ineffective for unapproved indication [Recovered/Resolved]
  - Crohn^s disease [Not Recovered/Not Resolved]
  - Haemorrhage [Recovered/Resolved]
  - Vomiting [Not Recovered/Not Resolved]
  - Pyrexia [Recovered/Resolved]

NARRATIVE: CASE EVENT DATE: 201606
